FAERS Safety Report 16107172 (Version 2)
Quarter: 2019Q3

REPORT INFORMATION
  Report Type: Spontaneous
  Country: JP (occurrence: JP)
  Receive Date: 20190322
  Receipt Date: 20190719
  Transmission Date: 20191004
  Serious: Yes (Hospitalization, Other)
  Sender: FDA-Public Use
  Company Number: JP-ASTRAZENECA-2018SF64033

PATIENT
  Age: 28630 Day
  Sex: Female
  Weight: 55 kg

DRUGS (11)
  1. CILNIDIPINE [Concomitant]
     Active Substance: CILNIDIPINE
     Indication: HYPERTENSION
     Route: 048
  2. ELIQUIS [Concomitant]
     Active Substance: APIXABAN
     Indication: ATRIAL FIBRILLATION
     Route: 048
     Dates: start: 20181211, end: 20181213
  3. TAGRISSO [Suspect]
     Active Substance: OSIMERTINIB
     Indication: NON-SMALL CELL LUNG CANCER
     Route: 048
     Dates: start: 20181130, end: 20181209
  4. IRESSA [Suspect]
     Active Substance: GEFITINIB
     Indication: NON-SMALL CELL LUNG CANCER
     Route: 048
  5. TAGRISSO [Suspect]
     Active Substance: OSIMERTINIB
     Indication: NON-SMALL CELL LUNG CANCER
     Route: 048
     Dates: start: 20181218
  6. LIXIANA OD [Concomitant]
     Active Substance: EDOXABAN TOSYLATE
     Indication: ATRIAL FIBRILLATION
     Route: 048
     Dates: start: 20181219
  7. INDERAL [Concomitant]
     Active Substance: PROPRANOLOL HYDROCHLORIDE
     Indication: PSYCHOGENIC TREMOR
     Route: 048
  8. DIAZEPAM. [Concomitant]
     Active Substance: DIAZEPAM
     Indication: PSYCHOGENIC TREMOR
     Route: 048
  9. MEMARY OD [Concomitant]
     Active Substance: MEMANTINE HYDROCHLORIDE
     Indication: COGNITIVE DISORDER
     Route: 048
  10. MIYA-BM [Concomitant]
     Active Substance: CLOSTRIDIUM BUTYRICUM SPORES STRAIN M-55
     Indication: DIARRHOEA
     Route: 048
  11. AMLODIPINE [Concomitant]
     Active Substance: AMLODIPINE BESYLATE
     Indication: HYPERTENSION
     Route: 048

REACTIONS (12)
  - Decreased appetite [Recovered/Resolved]
  - Atrial fibrillation [Recovered/Resolved]
  - Stomatitis [Recovered/Resolved]
  - Drug ineffective [Unknown]
  - Drug eruption [Recovered/Resolved]
  - Dizziness [Unknown]
  - Feeding disorder [Recovered/Resolved]
  - Electrocardiogram QT prolonged [Recovered/Resolved]
  - Altered state of consciousness [Recovered/Resolved]
  - Liver disorder [Recovered/Resolved]
  - Pyrexia [Recovered/Resolved]
  - Dehydration [Recovered/Resolved]

NARRATIVE: CASE EVENT DATE: 20180321
